FAERS Safety Report 6102673-4 (Version None)
Quarter: 2009Q1

REPORT INFORMATION
  Report Type: 
  Country: None (occurrence: None)
  Receive Date: 20090304
  Receipt Date: 20081212
  Transmission Date: 20090719
  Serious: No
  Sender: FDA-Public Use
  Company Number: A0760193A

PATIENT
  Age: 71 Year
  Sex: Male

DRUGS (10)
  1. REQUIP [Suspect]
     Indication: PARKINSON'S DISEASE
     Dosage: 2MG THREE TIMES PER DAY
     Route: 048
     Dates: start: 20070601, end: 20080201
  2. REQUIP XL [Suspect]
     Indication: PARKINSON'S DISEASE
     Dosage: 6MG PER DAY
     Route: 048
     Dates: start: 20081120
  3. BENICAR [Concomitant]
  4. METOPROLOL SUCCINATE [Concomitant]
  5. GLIPIZIDE [Concomitant]
  6. JANUVIA [Concomitant]
  7. NIASPAN [Concomitant]
  8. LIPITOR [Concomitant]
  9. HYTRIN [Concomitant]
  10. LOMOTIL [Concomitant]

REACTIONS (1)
  - SOMNOLENCE [None]
